FAERS Safety Report 12326782 (Version 1)
Quarter: 2016Q2

REPORT INFORMATION
  Report Type: Spontaneous
  Country: US (occurrence: US)
  Receive Date: 20160503
  Receipt Date: 20160503
  Transmission Date: 20160815
  Serious: No
  Sender: FDA-Public Use
  Company Number: US-PFIZER INC-2016204311

PATIENT
  Sex: Female

DRUGS (1)
  1. LYRICA [Suspect]
     Active Substance: PREGABALIN

REACTIONS (7)
  - Pain [Unknown]
  - Fall [Unknown]
  - Weight fluctuation [Unknown]
  - Condition aggravated [Unknown]
  - Asthenia [Unknown]
  - Increased appetite [Unknown]
  - Emotional distress [Unknown]
